FAERS Safety Report 13239710 (Version 1)
Quarter: 2017Q1

REPORT INFORMATION
  Report Type: Spontaneous
  Country: US (occurrence: US)
  Receive Date: 20170216
  Receipt Date: 20170216
  Transmission Date: 20170428
  Serious: No
  Sender: FDA-Public Use
  Company Number: US-PFIZER INC-2016137586

PATIENT
  Age: 45 Year
  Sex: Female
  Weight: 78.46 kg

DRUGS (23)
  1. LYRICA [Suspect]
     Active Substance: PREGABALIN
     Indication: RADICULOPATHY
     Dosage: 300 MG, DAILY (1 CAP(S) PO QAM AND 2 CAPS QHS 30 DAY(S))
     Route: 048
     Dates: start: 20160122
  2. LYRICA [Suspect]
     Active Substance: PREGABALIN
     Indication: BACK PAIN
     Dosage: 300 MG, DAILY (1 CAP(S) PO QAM AND 2 CAPS PO QPM)
     Route: 048
     Dates: start: 20160819
  3. CYMBALTA [Concomitant]
     Active Substance: DULOXETINE HYDROCHLORIDE
     Dosage: 120 MG, 2X/DAY
     Route: 048
  4. DEPAKOTE [Concomitant]
     Active Substance: DIVALPROEX SODIUM
     Dosage: 500 MG, 3X/DAY
     Route: 048
  5. PROAIR HFA [Concomitant]
     Active Substance: ALBUTEROL SULFATE
     Dosage: 2 DF, AS NEEDED, (90 MCG/INH INHALATION AEROSOL WITH ADAPTER)
     Route: 055
  6. LYRICA [Suspect]
     Active Substance: PREGABALIN
     Indication: MYALGIA
  7. ACETAMINOPHEN W/HYDROCODONE [Concomitant]
     Active Substance: ACETAMINOPHEN\HYDROCODONE
     Dosage: 1 DF, AS NEEDED,  (Q6HR) [HYDROCODONE: 325MG][PARACETAMOL:10MG]
     Route: 048
  8. CLARITIN [Concomitant]
     Active Substance: LORATADINE
     Dosage: UNK, AS NEEDED
     Route: 048
  9. KLONOPIN [Concomitant]
     Active Substance: CLONAZEPAM
     Dosage: 0.5 MG, AS NEEDED
     Route: 048
  10. ADVAIR HFA [Concomitant]
     Active Substance: FLUTICASONE PROPIONATE\SALMETEROL XINAFOATE
     Dosage: UNK, (230 MCG-21 MCG/INH)
     Route: 055
  11. LYRICA [Suspect]
     Active Substance: PREGABALIN
     Indication: RADICULAR PAIN
  12. BUSPIRONE [Concomitant]
     Active Substance: BUSPIRONE HYDROCHLORIDE
     Dosage: 10 MG, 3X/DAY
     Route: 048
  13. NASONEX [Concomitant]
     Active Substance: MOMETASONE FUROATE
     Dosage: 2 DF, AS NEEDED, (QDAY; 50 MCG/INH)
     Route: 045
  14. DEPAKOTE [Concomitant]
     Active Substance: DIVALPROEX SODIUM
     Dosage: 250 MG, 2X/DAY
     Route: 048
  15. SIMVASTATIN. [Concomitant]
     Active Substance: SIMVASTATIN
     Dosage: 20 MG, 1X/DAY, (QHS)
     Route: 048
  16. ABILIFY [Concomitant]
     Active Substance: ARIPIPRAZOLE
     Dosage: 10 MG, 1X/DAY, (QPM)
     Route: 048
  17. EPIPEN [Concomitant]
     Active Substance: EPINEPHRINE
     Dosage: UNK, AS NEEDED
     Route: 030
  18. MOBIC [Concomitant]
     Active Substance: MELOXICAM
     Dosage: UNK, DAILY
     Route: 048
  19. LISINOPRIL. [Concomitant]
     Active Substance: LISINOPRIL
     Dosage: 20 MG, 1X/DAY
     Route: 048
  20. PHENTERMINE. [Concomitant]
     Active Substance: PHENTERMINE
     Dosage: 37.5 MG, 1X/DAY, (QAM)
     Route: 048
  21. BUSPIRONE [Concomitant]
     Active Substance: BUSPIRONE HYDROCHLORIDE
     Dosage: 10 MG, 2X/DAY
     Route: 048
  22. L-METHYLFOLATE [Concomitant]
     Active Substance: LEVOMEFOLIC ACID
     Dosage: 15 MG, 1X/DAY, (QHS)
     Route: 048
  23. PATANOL [Concomitant]
     Active Substance: OLOPATADINE HYDROCHLORIDE
     Dosage: 2 GTT, 2X/DAY, (BOTH EYE)
     Route: 047

REACTIONS (6)
  - Pain [Unknown]
  - Nausea [Unknown]
  - Malaise [Unknown]
  - Headache [Unknown]
  - Withdrawal syndrome [Unknown]
  - Feeling abnormal [Unknown]
